FAERS Safety Report 24964385 (Version 1)
Quarter: 2025Q1

REPORT INFORMATION
  Report Type: Spontaneous
  Country: US (occurrence: US)
  Receive Date: 20250213
  Receipt Date: 20250213
  Transmission Date: 20250409
  Serious: Yes (Hospitalization, Other)
  Sender: RANBAXY
  Company Number: US-SUN PHARMACEUTICAL INDUSTRIES LTD-2025R1-493448

PATIENT
  Sex: Female
  Weight: 1.6 kg

DRUGS (4)
  1. DEXAMETHASONE [Suspect]
     Active Substance: DEXAMETHASONE
     Indication: Product used for unknown indication
     Dosage: 8 MILLIGRAM, DAILY
     Route: 064
  2. DEXAMETHASONE [Suspect]
     Active Substance: DEXAMETHASONE
     Dosage: 4 MILLIGRAM, DAILY
     Route: 064
  3. DEXAMETHASONE [Suspect]
     Active Substance: DEXAMETHASONE
     Dosage: 2 MILLIGRAM, DAILY
     Route: 064
  4. TERBUTALINE [Suspect]
     Active Substance: TERBUTALINE
     Indication: Product used for unknown indication
     Dosage: 5 MILLIGRAM, QID
     Route: 064

REACTIONS (10)
  - Premature baby [Unknown]
  - Foetal exposure during pregnancy [Unknown]
  - Low birth weight baby [Unknown]
  - Vomiting [Unknown]
  - Acute respiratory failure [Unknown]
  - Sinus node dysfunction [Recovering/Resolving]
  - Ventricular dyssynchrony [Recovering/Resolving]
  - Fascicular block [Unknown]
  - Foetal growth restriction [Recovering/Resolving]
  - Atrioventricular block complete [Recovering/Resolving]
